FAERS Safety Report 11395313 (Version 1)
Quarter: 2015Q3

REPORT INFORMATION
  Report Type: Spontaneous
  Country: US (occurrence: None)
  Receive Date: 20150817
  Receipt Date: 20150817
  Transmission Date: 20151125
  Serious: Yes (Disabling)
  Sender: FDA-Public Use
  Company Number: None

PATIENT
  Age: 48 Year
  Sex: Female
  Weight: 72.58 kg

DRUGS (3)
  1. WARFARIN [Concomitant]
     Active Substance: WARFARIN
  2. OLYSIO [Suspect]
     Active Substance: SIMEPREVIR
     Indication: HEPATITIS C
     Route: 048
     Dates: start: 20140404, end: 20140704
  3. SOVALDI [Suspect]
     Active Substance: SOFOSBUVIR

REACTIONS (4)
  - Meningioma [None]
  - Fatigue [None]
  - Peripheral artery thrombosis [None]
  - Laryngeal neoplasm [None]
